FAERS Safety Report 6349333-2 (Version None)
Quarter: 2009Q3

REPORT INFORMATION
  Report Type: 
  Country: None (occurrence: None)
  Receive Date: 20090911
  Receipt Date: 20090901
  Transmission Date: 20100115
  Serious: Yes (Hospitalization)
  Sender: FDA-Public Use
  Company Number: B0592608A

PATIENT
  Age: 16 Year
  Sex: Male

DRUGS (2)
  1. VALACYCLOVIR [Suspect]
     Dosage: 1000MG PER DAY
     Route: 065
     Dates: start: 20060501
  2. PREDNISOLONE [Suspect]
     Route: 048

REACTIONS (14)
  - CONDITION AGGRAVATED [None]
  - DRUG ERUPTION [None]
  - DYSPHAGIA [None]
  - ERYTHEMA MULTIFORME [None]
  - FATIGUE [None]
  - LYMPHOCYTE TRANSFORMATION TEST POSITIVE [None]
  - LYMPHOCYTIC INFILTRATION [None]
  - MOUTH ULCERATION [None]
  - PYREXIA [None]
  - RASH MACULAR [None]
  - SCROTAL ULCER [None]
  - SKIN DEGENERATIVE DISORDER [None]
  - SKIN LESION [None]
  - SKIN NECROSIS [None]
